FAERS Safety Report 16077204 (Version 1)
Quarter: 2019Q1

REPORT INFORMATION
  Report Type: Spontaneous
  Country: KR (occurrence: KR)
  Receive Date: 20190315
  Receipt Date: 20190315
  Transmission Date: 20190418
  Serious: Yes (Other)
  Sender: FDA-Public Use
  Company Number: KR-TEVA-2019-KR-1023223

PATIENT
  Age: 76 Year
  Sex: Male

DRUGS (2)
  1. BICALUTAMIDE. [Suspect]
     Active Substance: BICALUTAMIDE
     Indication: PROSTATE CANCER
     Route: 065
  2. GOSERELIN [Suspect]
     Active Substance: GOSERELIN
     Indication: PROSTATE CANCER
     Route: 065

REACTIONS (2)
  - Squamous cell carcinoma [Recovering/Resolving]
  - Prostate cancer [Recovering/Resolving]
